FAERS Safety Report 17263483 (Version 1)
Quarter: 2020Q1

REPORT INFORMATION
  Report Type: Spontaneous
  Country: US (occurrence: US)
  Receive Date: 20200112
  Receipt Date: 20200112
  Transmission Date: 20200409
  Serious: Yes (Other)
  Sender: FDA-Public Use
  Company Number: None

PATIENT
  Age: 56 Year
  Sex: Female
  Weight: 63 kg

DRUGS (10)
  1. MULTIVITAMIN [Concomitant]
     Active Substance: VITAMINS
  2. LAMOTRIGINE. [Suspect]
     Active Substance: LAMOTRIGINE
     Indication: SEIZURE
     Dosage: ?          QUANTITY:4 TABLET(S);?
     Route: 048
     Dates: start: 20200110, end: 20200112
  3. FLUTICASONE. [Concomitant]
     Active Substance: FLUTICASONE
  4. VITAMIN D [Concomitant]
     Active Substance: VITAMIN D NOS
  5. PREGABLIN [Concomitant]
     Active Substance: PREGABALIN
  6. VENTOLIN [Concomitant]
     Active Substance: ALBUTEROL SULFATE
  7. DEXILANT [Concomitant]
     Active Substance: DEXLANSOPRAZOLE
  8. MONTELUKAST [Concomitant]
     Active Substance: MONTELUKAST SODIUM
  9. STIOLTO RESPIMAT [Concomitant]
     Active Substance: OLODATEROL HYDROCHLORIDE\TIOTROPIUM BROMIDE MONOHYDRATE
  10. MAGNESIUM [Concomitant]
     Active Substance: MAGNESIUM

REACTIONS (4)
  - Feeling abnormal [None]
  - Nausea [None]
  - Dizziness [None]
  - Balance disorder [None]

NARRATIVE: CASE EVENT DATE: 20200110
